FAERS Safety Report 10770792 (Version 1)
Quarter: 2015Q1

REPORT INFORMATION
  Report Type: Spontaneous
  Country: US (occurrence: None)
  Receive Date: 20150206
  Receipt Date: 20150206
  Transmission Date: 20150721
  Serious: No
  Sender: FDA-Public Use
  Company Number: HYP201305-000006

PATIENT
  Age: 4 Year
  Sex: Female
  Weight: 23.58 kg

DRUGS (3)
  1. ARGININE (ARGININE) [Concomitant]
  2. POTASSIUM SUPPLEMENTS [Concomitant]
  3. RAVICTI [Suspect]
     Active Substance: GLYCEROL PHENYLBUTYRATE
     Indication: UREA CYCLE ENZYME DEFICIENCY
     Route: 048
     Dates: start: 20130412

REACTIONS (2)
  - Abdominal discomfort [None]
  - Diarrhoea [None]

NARRATIVE: CASE EVENT DATE: 20130412
